FAERS Safety Report 8116193-9 (Version None)
Quarter: 2012Q1

REPORT INFORMATION
  Report Type: 
  Country: None (occurrence: None)
  Receive Date: 20120206
  Receipt Date: 20120201
  Transmission Date: 20120608
  Serious: Yes (Hospitalization)
  Sender: FDA-Public Use
  Company Number: US-MERCK-1202USA00331

PATIENT
  Age: 70 Year
  Sex: Male

DRUGS (5)
  1. FUROSEMIDE [Concomitant]
     Route: 065
  2. LISINOPRIL [Concomitant]
     Route: 048
  3. PLAVIX [Concomitant]
     Route: 065
  4. ZOCOR [Suspect]
     Indication: BLOOD CHOLESTEROL
     Route: 048
     Dates: start: 20120101, end: 20120130
  5. CARVEDILOL [Concomitant]
     Route: 065

REACTIONS (9)
  - MOBILITY DECREASED [None]
  - MYALGIA [None]
  - MYOGLOBIN BLOOD PRESENT [None]
  - MYOGLOBIN BLOOD [None]
  - MYOGLOBIN URINE PRESENT [None]
  - MYOGLOBIN URINE [None]
  - PAIN [None]
  - HEPATIC ENZYME INCREASED [None]
  - URINE COLOUR ABNORMAL [None]
